FAERS Safety Report 12731328 (Version 1)
Quarter: 2016Q3

REPORT INFORMATION
  Report Type: Report from Study
  Country: US (occurrence: US)
  Receive Date: 20160912
  Receipt Date: 20160912
  Transmission Date: 20161109
  Serious: Yes (Other)
  Sender: FDA-Public Use
  Company Number: US-BAXALTA-2016BLT004935AA

PATIENT
  Sex: Female

DRUGS (1)
  1. HYQVIA [Suspect]
     Active Substance: HUMAN IMMUNOGLOBULIN G\HYALURONIDASE RECOMBINANT HUMAN
     Indication: PRIMARY IMMUNODEFICIENCY SYNDROME
     Dosage: UNK, 1X A MONTH
     Route: 058

REACTIONS (6)
  - Sinusitis [Unknown]
  - Blood immunoglobulin G increased [Recovered/Resolved]
  - Alopecia [Recovered/Resolved]
  - Unevaluable event [Recovered/Resolved]
  - Scleroderma [Unknown]
  - Fatigue [Recovered/Resolved]
